FAERS Safety Report 9549123 (Version 2)
Quarter: 2013Q4

REPORT INFORMATION
  Report Type: Spontaneous
  Country: BR (occurrence: BR)
  Receive Date: 20130924
  Receipt Date: 20131226
  Transmission Date: 20140711
  Serious: Yes (Hospitalization)
  Sender: FDA-Public Use
  Company Number: BR-PFIZER INC-2013273458

PATIENT
  Age: 24 Year
  Sex: Female

DRUGS (1)
  1. LIPITOR [Suspect]
     Indication: BLOOD CHOLESTEROL
     Dosage: 40 MG (1 TABLET), 1X/DAY, CONTINUOUS USE
     Route: 048
     Dates: start: 20130120

REACTIONS (2)
  - Infarction [Unknown]
  - Drug dose omission [Unknown]
